FAERS Safety Report 7197093-8 (Version None)
Quarter: 2010Q4

REPORT INFORMATION
  Report Type: 
  Country: None (occurrence: None)
  Receive Date: 20101224
  Receipt Date: 20101221
  Transmission Date: 20110411
  Serious: Yes (Other)
  Sender: FDA-Public Use
  Company Number: IT-BRISTOL-MYERS SQUIBB COMPANY-15455975

PATIENT
  Age: 4 Year
  Sex: Male

DRUGS (5)
  1. BB-K8 [Suspect]
     Indication: ANTIBIOTIC PROPHYLAXIS
     Route: 042
     Dates: start: 20100331, end: 20100406
  2. CEFTAZIDIME [Suspect]
     Indication: ANTIVIRAL PROPHYLAXIS
     Route: 042
     Dates: start: 20100331, end: 20100406
  3. CEFTAZIDIME [Suspect]
     Indication: ANTIBIOTIC PROPHYLAXIS
     Route: 042
     Dates: start: 20100331, end: 20100406
  4. ZOVIRAX [Suspect]
     Indication: ANTIBIOTIC PROPHYLAXIS
     Route: 048
  5. ZOVIRAX [Suspect]
     Indication: ANTIVIRAL PROPHYLAXIS
     Route: 048

REACTIONS (1)
  - DIARRHOEA HAEMORRHAGIC [None]
